FAERS Safety Report 24045526 (Version 1)
Quarter: 2024Q3

REPORT INFORMATION
  Report Type: Report from Study
  Country: US (occurrence: US)
  Receive Date: 20240703
  Receipt Date: 20240703
  Transmission Date: 20241017
  Serious: Yes (Death)
  Sender: INSMED
  Company Number: US-INSMED, INC.-2024-00491-US

PATIENT
  Age: 93 Year
  Sex: Female

DRUGS (2)
  1. ARIKAYCE [Suspect]
     Active Substance: AMIKACIN
     Indication: Product used for unknown indication
     Dosage: 590 MILLIGRAM, UNK
     Route: 055
     Dates: start: 20220302
  2. ARIKAYCE [Suspect]
     Active Substance: AMIKACIN
     Dosage: 590 MILLIGRAM, BIW ON MONDAYS AND FRIDAY
     Route: 055

REACTIONS (5)
  - Death [Fatal]
  - Chest pain [Unknown]
  - Aphonia [Recovering/Resolving]
  - Dyspnoea [Recovering/Resolving]
  - Therapy interrupted [Unknown]

NARRATIVE: CASE EVENT DATE: 20240618
